FAERS Safety Report 19380290 (Version 1)
Quarter: 2021Q2

REPORT INFORMATION
  Report Type: Spontaneous
  Country: US (occurrence: US)
  Receive Date: 20210607
  Receipt Date: 20210607
  Transmission Date: 20210717
  Serious: No
  Sender: FDA-Public Use
  Company Number: US-AUROBINDO-AUR-APL-2021-019614

PATIENT
  Age: 50 Year
  Sex: Female
  Weight: 70.31 kg

DRUGS (2)
  1. TAMOXIFEN CITRATE TABLETS USP, 20MG [Suspect]
     Active Substance: TAMOXIFEN CITRATE
     Indication: ANTIOESTROGEN THERAPY
     Dosage: UNK UNK, ONCE A DAY, FROM 1 MONTH
     Route: 065
  2. TAMOXIFEN CITRATE TABLETS USP, 20MG [Suspect]
     Active Substance: TAMOXIFEN CITRATE
     Dosage: UNK UNK, ONCE A DAY, NEW REFILL
     Route: 065
     Dates: start: 20210506

REACTIONS (2)
  - Somnolence [Not Recovered/Not Resolved]
  - Product quality issue [Unknown]

NARRATIVE: CASE EVENT DATE: 20210506
